FAERS Safety Report 16338282 (Version 5)
Quarter: 2021Q2

REPORT INFORMATION
  Report Type: Report from Study
  Country: BR (occurrence: BR)
  Receive Date: 20190521
  Receipt Date: 20210429
  Transmission Date: 20210716
  Serious: Yes (Hospitalization, Other)
  Sender: FDA-Public Use
  Company Number: BR-JNJFOC-20181101318

PATIENT
  Age: 33 Year
  Sex: Male
  Weight: 88 kg

DRUGS (5)
  1. MORPHINE [Concomitant]
     Active Substance: MORPHINE
     Route: 065
  2. MAGNESIUM [Concomitant]
     Active Substance: MAGNESIUM
  3. DULOXETINE. [Concomitant]
     Active Substance: DULOXETINE
  4. STELARA [Suspect]
     Active Substance: USTEKINUMAB
     Indication: CROHN^S DISEASE
     Route: 058
     Dates: start: 20181010, end: 20190130
  5. TRYPTANOL [Suspect]
     Active Substance: AMITRIPTYLINE
     Route: 065

REACTIONS (12)
  - Blood uric acid increased [Unknown]
  - Cholelithiasis [Unknown]
  - Incisional hernia [Unknown]
  - Nephrolithiasis [Not Recovered/Not Resolved]
  - Crohn^s disease [Not Recovered/Not Resolved]
  - Anaemia [Unknown]
  - Inflammation [Unknown]
  - Weight increased [Unknown]
  - Anal fistula [Unknown]
  - Hepatic steatosis [Unknown]
  - Stomal hernia [Unknown]
  - Non-Hodgkin^s lymphoma [Recovered/Resolved]

NARRATIVE: CASE EVENT DATE: 2018
